FAERS Safety Report 6691069-2 (Version None)
Quarter: 2010Q2

REPORT INFORMATION
  Report Type: 
  Country: None (occurrence: None)
  Receive Date: 20100422
  Receipt Date: 20100414
  Transmission Date: 20101027
  Serious: Yes (Other)
  Sender: FDA-Public Use
  Company Number: US-BIOGENIDEC-2010BI004622

PATIENT
  Sex: Female

DRUGS (1)
  1. TYSABRI [Suspect]
     Indication: MULTIPLE SCLEROSIS
     Route: 042
     Dates: start: 20061114

REACTIONS (17)
  - AMNESIA [None]
  - AUTOIMMUNE HEPATITIS [None]
  - BACK PAIN [None]
  - BALANCE DISORDER [None]
  - BUNION [None]
  - DIABETES MELLITUS [None]
  - DIARRHOEA [None]
  - DIZZINESS [None]
  - FIBROMYALGIA [None]
  - HYPERTENSION [None]
  - INCONTINENCE [None]
  - INSOMNIA [None]
  - INTERVERTEBRAL DISC DEGENERATION [None]
  - IRRITABLE BOWEL SYNDROME [None]
  - MUSCULOSKELETAL DISORDER [None]
  - PAIN [None]
  - PALPITATIONS [None]
